FAERS Safety Report 17884040 (Version 5)
Quarter: 2020Q4

REPORT INFORMATION
  Report Type: Spontaneous
  Country: US (occurrence: US)
  Receive Date: 20200611
  Receipt Date: 20201127
  Transmission Date: 20210113
  Serious: No
  Sender: FDA-Public Use
  Company Number: US-PFIZER INC-2020222190

PATIENT
  Age: 46 Year
  Sex: Female
  Weight: 59.87 kg

DRUGS (3)
  1. GENOTROPIN [Suspect]
     Active Substance: SOMATROPIN
     Dosage: 0.6 MG, DAILY
     Dates: start: 20110622
  2. GENOTROPIN [Suspect]
     Active Substance: SOMATROPIN
     Dosage: UNK
     Dates: end: 20200513
  3. GENOTROPIN [Suspect]
     Active Substance: SOMATROPIN
     Indication: PRADER-WILLI SYNDROME
     Dosage: 0.6 MG
     Dates: start: 2009

REACTIONS (6)
  - Device dispensing error [Unknown]
  - Drug dose omission by device [Unknown]
  - Device leakage [Unknown]
  - Device breakage [Unknown]
  - Product dose omission issue [Unknown]
  - Circumstance or information capable of leading to device use error [Unknown]

NARRATIVE: CASE EVENT DATE: 20200513
